FAERS Safety Report 9576569 (Version 2)
Quarter: 2013Q4

REPORT INFORMATION
  Report Type: Report from Study
  Country: JP (occurrence: JP)
  Receive Date: 20131001
  Receipt Date: 20131101
  Transmission Date: 20140711
  Serious: Yes (Life-Threatening, Other)
  Sender: FDA-Public Use
  Company Number: JP-GILEAD-2013-0084459

PATIENT
  Age: 60 Year
  Sex: Male
  Weight: 52 kg

DRUGS (12)
  1. AMBRISENTAN [Suspect]
     Indication: PULMONARY HYPERTENSION
     Dosage: 10 MG, QD
     Route: 048
     Dates: start: 20110606
  2. AMBRISENTAN [Suspect]
     Dosage: 5 MG, QD
     Route: 048
     Dates: start: 20110601, end: 20110606
  3. ADCIRCA [Concomitant]
     Indication: PULMONARY HYPERTENSION
     Dosage: UNK
     Route: 048
     Dates: start: 20110609
  4. CARELOAD [Concomitant]
     Indication: PULMONARY HYPERTENSION
     Dosage: UNK
     Route: 048
     Dates: start: 20110528
  5. ALOSITOL [Concomitant]
     Dosage: UNK
     Route: 048
  6. AMLODIN [Concomitant]
     Dosage: UNK
     Route: 048
  7. URSO                               /00465701/ [Concomitant]
     Dosage: UNK
     Route: 048
  8. WARFARIN [Concomitant]
     Indication: PROPHYLAXIS
     Dosage: UNK
     Route: 048
     Dates: start: 20110601
  9. ALLELOCK [Concomitant]
     Dosage: UNK
     Route: 048
  10. CEREKINON [Concomitant]
     Dosage: UNK
     Route: 048
  11. SLOW-K [Concomitant]
     Dosage: UNK
     Route: 048
  12. BIOFERMIN                          /01617201/ [Concomitant]
     Dosage: UNK
     Route: 048

REACTIONS (2)
  - Pulmonary hypertension [Recovered/Resolved]
  - White blood cell count decreased [Not Recovered/Not Resolved]
